FAERS Safety Report 10228286 (Version 1)
Quarter: 2014Q1

REPORT INFORMATION
  Report Type: Spontaneous
  Country: US (occurrence: None)
  Receive Date: 20140306
  Receipt Date: 20140306
  Transmission Date: 20141002
  Serious: Yes (Hospitalization)
  Sender: FDA-Public Use
  Company Number: 163-21880-13053501

PATIENT
  Age: 56 Year
  Sex: Female
  Weight: 59.9 kg

DRUGS (18)
  1. REVLIMIDE(LENALIDOMIDE)(10 MILLIGRAM, CAPSULES) [Suspect]
     Indication: PLASMA CELL MYELOMA
     Route: 048
     Dates: start: 201203
  2. CENTRUM COMPLETE MULTIVIT(CENTRUM)(TABLETS) [Concomitant]
  3. XANAX(ALPRAZOLAM)(TABLETS) [Concomitant]
  4. AMBIEN(ZOLPIDEM TARTRATE)(TABLETS) [Concomitant]
  5. FOLIC ACID(FOLIC ACID) (TABLETS) [Concomitant]
  6. VALTREX(VALACICLOVIR HYDROCHLORIDE)(CAPSULES) [Concomitant]
  7. BACTRIM DS(BACTRIM)(TABLETS) [Concomitant]
  8. NORCO(VIVODIN)(TABLETS) [Concomitant]
  9. PROTONIX DR(TABLETS) [Concomitant]
  10. ASPIRIN(ACETYLSALICYLIC ACID)(ENTERIC-COATED TABLET) [Concomitant]
  11. PANTOPRAZOLE SOD DR(PANTOPRAZOLE)(TABLETS) [Concomitant]
  12. ONDANSETRON HCL (ONDANSETRON HYDROCHLORIDE)(TABLETS) [Concomitant]
  13. WARFARIN SODIUM(WARFARIN SODIUM)(TABLETS) [Concomitant]
  14. LACTULOSE(LACTULOSE)(SOLUTION) [Concomitant]
  15. POTASSIUM CL ER(POTASSIUM CHLORIDE)(TABLETS) [Concomitant]
  16. TRAMADOL HCL (TRAMADOL HYDROCHLORIDE)(TABLETS) [Concomitant]
  17. PROMETHAZINE(PROMETHAZINE)(TABLETS) [Concomitant]
  18. CYMBALTA [Concomitant]

REACTIONS (3)
  - White blood cell count decreased [None]
  - Urinary tract infection [None]
  - Nasopharyngitis [None]
